FAERS Safety Report 23216766 (Version 2)
Quarter: 2024Q2

REPORT INFORMATION
  Report Type: Other
  Country: CO (occurrence: CO)
  Receive Date: 20231122
  Receipt Date: 20240605
  Transmission Date: 20240715
  Serious: Yes (Other)
  Sender: FDA-Public Use
  Company Number: CO-TOLMAR, INC.-23CO044446

PATIENT
  Age: 66 Year
  Sex: Male

DRUGS (3)
  1. ELIGARD [Suspect]
     Active Substance: LEUPROLIDE ACETATE
     Indication: Prostate cancer
     Dosage: 45 MILLIGRAM, Q 6 MONTH
     Route: 058
     Dates: start: 20230329, end: 20240501
  2. ELIGARD [Suspect]
     Active Substance: LEUPROLIDE ACETATE
     Indication: Prostate cancer
     Dosage: UNK
  3. EPAMIN [PHENYTOIN] [Concomitant]
     Indication: Epilepsy
     Dosage: 5 CC, Q 8 HR

REACTIONS (10)
  - Respiratory tract infection [Not Recovered/Not Resolved]
  - Syncope [Recovered/Resolved]
  - Complication associated with device [Not Recovered/Not Resolved]
  - Weight decreased [Not Recovered/Not Resolved]
  - Drug resistance [Unknown]
  - Diarrhoea [Not Recovered/Not Resolved]
  - Pyrexia [Recovered/Resolved]
  - Insomnia [Recovering/Resolving]
  - Hyperhidrosis [Not Recovered/Not Resolved]
  - Prostatic specific antigen abnormal [Recovering/Resolving]

NARRATIVE: CASE EVENT DATE: 20230301
